FAERS Safety Report 6456471-2 (Version None)
Quarter: 2009Q4

REPORT INFORMATION
  Report Type: 
  Country: None (occurrence: None)
  Receive Date: 20091125
  Receipt Date: 20091118
  Transmission Date: 20100525
  Serious: Yes (Other)
  Sender: FDA-Public Use
  Company Number: US-AMGEN-QUU375510

PATIENT
  Sex: Female

DRUGS (1)
  1. ENBREL [Suspect]
     Indication: RHEUMATOID ARTHRITIS
     Route: 058
     Dates: start: 20050101

REACTIONS (7)
  - ANAEMIA [None]
  - CONTUSION [None]
  - DIZZINESS [None]
  - FALL [None]
  - FIBROMYALGIA [None]
  - JOINT INJURY [None]
  - TYPE 2 DIABETES MELLITUS [None]
